FAERS Safety Report 5157402-8 (Version None)
Quarter: 2006Q4

REPORT INFORMATION
  Report Type: 
  Country: None (occurrence: None)
  Receive Date: 20061127
  Receipt Date: 20060518
  Transmission Date: 20070319
  Serious: Yes (Other)
  Sender: FDA-Public Use
  Company Number: US-ROCHE-448803

PATIENT
  Age: 26 Year
  Sex: Male
  Weight: 83.9 kg

DRUGS (2)
  1. ACCUTANE [Suspect]
     Route: 048
     Dates: start: 20010830
  2. ACCUTANE [Suspect]
     Route: 048
     Dates: start: 20010928, end: 20020215

REACTIONS (21)
  - ANGINA PECTORIS [None]
  - ARTHRITIS REACTIVE [None]
  - BACK PAIN [None]
  - COELIAC DISEASE [None]
  - COLITIS ULCERATIVE [None]
  - DEPRESSION [None]
  - DIZZINESS [None]
  - DYSPNOEA [None]
  - HEADACHE [None]
  - INFLAMMATORY BOWEL DISEASE [None]
  - INSOMNIA [None]
  - IRRITABLE BOWEL SYNDROME [None]
  - MAJOR DEPRESSION [None]
  - NECK INJURY [None]
  - NECK PAIN [None]
  - PROCTOCOLITIS [None]
  - PRURITUS [None]
  - SOMNOLENCE [None]
  - TREATMENT NONCOMPLIANCE [None]
  - UNEVALUABLE EVENT [None]
  - VISUAL DISTURBANCE [None]
